FAERS Safety Report 12210159 (Version 3)
Quarter: 2018Q3

REPORT INFORMATION
  Report Type: Spontaneous
  Country: US (occurrence: US)
  Receive Date: 20160325
  Receipt Date: 20180716
  Transmission Date: 20181010
  Serious: No
  Sender: FDA-Public Use
  Company Number: US-PFIZER INC-2016140189

PATIENT
  Sex: Female

DRUGS (2)
  1. ZITHROMAX [Suspect]
     Active Substance: AZITHROMYCIN DIHYDRATE
     Indication: SINUSITIS
     Dosage: 2 DF, DAILY
  2. ZITHROMAX [Suspect]
     Active Substance: AZITHROMYCIN DIHYDRATE
     Indication: COUGH
     Dosage: 1 DF, DAILY

REACTIONS (4)
  - Drug hypersensitivity [Unknown]
  - Nausea [Unknown]
  - Diarrhoea [Unknown]
  - Contraindicated product administered [Unknown]
